FAERS Safety Report 4314723-6 (Version None)
Quarter: 2004Q1

REPORT INFORMATION
  Report Type: 
  Country: None (occurrence: None)
  Receive Date: 20040308
  Receipt Date: 20040219
  Transmission Date: 20041129
  Serious: Yes (Disabling)
  Sender: FDA-Public Use
  Company Number: 200314223

PATIENT
  Age: 83 Year
  Sex: Male

DRUGS (11)
  1. OCUFEN [Suspect]
     Indication: PROPHYLAXIS
     Dosage: 4 DROP BID EYE
     Dates: start: 20031104
  2. CYCLOPENTOLATE HCL [Suspect]
     Indication: PROPHYLAXIS
  3. PHENYLEPHRINE 2.5% [Suspect]
     Indication: PROPHYLAXIS
  4. CHLORAMPHENICOL [Suspect]
     Indication: PROPHYLAXIS
  5. MINIMS BENOXINATE HYDROCHLORIDE [Suspect]
     Indication: LOCAL ANAESTHESIA
  6. LIGNOCAINE 1% [Suspect]
     Indication: LOCAL ANAESTHESIA
  7. BETADINE [Suspect]
     Indication: PREOPERATIVE CARE
  8. HEALONID [Suspect]
  9. BETAMETHASONE [Suspect]
  10. CALCIPOTRIOL [Suspect]
     Indication: PSORIASIS
  11. BSS [Suspect]

REACTIONS (4)
  - ANTERIOR CHAMBER DISORDER [None]
  - OCULAR TOXICITY [None]
  - POST PROCEDURAL COMPLICATION [None]
  - VISUAL ACUITY REDUCED [None]
